FAERS Safety Report 5581069-8 (Version None)
Quarter: 2007Q4

REPORT INFORMATION
  Report Type: 
  Country: None (occurrence: None)
  Receive Date: 20071130
  Receipt Date: 20070702
  Transmission Date: 20080405
  Serious: No
  Sender: FDA-Public Use
  Company Number: US200707001681

PATIENT
  Age: 63 Year
  Sex: Male
  Weight: 106.1 kg

DRUGS (5)
  1. BYETTA [Suspect]
     Indication: TYPE 2 DIABETES MELLITUS
     Dosage: 5 UG, 2/D, SUBCUTANEOUS ; 5 UG, EACH MORNING, SUBCUTANEOUS ; 10 UG, EACH EVENING, SUBCUTANEOUS
     Route: 058
     Dates: start: 20070401, end: 20070501
  2. BYETTA [Suspect]
     Indication: TYPE 2 DIABETES MELLITUS
     Dosage: 5 UG, 2/D, SUBCUTANEOUS ; 5 UG, EACH MORNING, SUBCUTANEOUS ; 10 UG, EACH EVENING, SUBCUTANEOUS
     Route: 058
     Dates: start: 20070501
  3. BYETTA [Suspect]
     Indication: TYPE 2 DIABETES MELLITUS
     Dosage: 5 UG, 2/D, SUBCUTANEOUS ; 5 UG, EACH MORNING, SUBCUTANEOUS ; 10 UG, EACH EVENING, SUBCUTANEOUS
     Route: 058
     Dates: start: 20070501
  4. METFORMIN HCL [Concomitant]
  5. ACTOS /USA/ (PIOGLITAZONE HYDROCHLORIDE) [Concomitant]

REACTIONS (5)
  - BLOOD GLUCOSE INCREASED [None]
  - BLOOD PRESSURE DECREASED [None]
  - DECREASED APPETITE [None]
  - DIZZINESS [None]
  - WEIGHT DECREASED [None]
